FAERS Safety Report 22275178 (Version 1)
Quarter: 2023Q2

REPORT INFORMATION
  Report Type: Spontaneous
  Country: DK (occurrence: DK)
  Receive Date: 20230502
  Receipt Date: 20230502
  Transmission Date: 20230722
  Serious: Yes (Other)
  Sender: FDA-Public Use
  Company Number: DK-PFIZER INC-PV202300077202

PATIENT
  Age: 58 Year
  Sex: Female

DRUGS (2)
  1. INFLIXIMAB [Interacting]
     Active Substance: INFLIXIMAB
     Indication: Rheumatoid arthritis
     Dosage: 200 MG, QW
     Route: 042
     Dates: start: 20191204
  2. AZATHIOPRINE [Interacting]
     Active Substance: AZATHIOPRINE
     Indication: Rheumatoid arthritis
     Dosage: 50 MG
     Route: 048
     Dates: start: 20100101, end: 20220401

REACTIONS (3)
  - Drug interaction [Unknown]
  - Keratoacanthoma [Recovering/Resolving]
  - Off label use [Unknown]
